FAERS Safety Report 9361083 (Version 1)
Quarter: 2013Q2

REPORT INFORMATION
  Report Type: Spontaneous
  Country: US (occurrence: US)
  Receive Date: 20130621
  Receipt Date: 20130621
  Transmission Date: 20140414
  Serious: Yes (Disabling)
  Sender: FDA-Public Use
  Company Number: US-ABBOTT-13P-163-1104425-00

PATIENT
  Age: 60 Year
  Sex: Female
  Weight: 49.94 kg

DRUGS (15)
  1. VICODIN [Suspect]
     Indication: PAIN
  2. LYRICA [Suspect]
     Indication: FIBROMYALGIA
     Dosage: 50 MG DAILY
  3. LYRICA [Suspect]
     Dosage: 75 MG DAILY
  4. HYDROCODONE/ACETAMINOPHEN [Suspect]
     Indication: PAIN
     Dosage: 10/325 MG
  5. ULTRAM [Concomitant]
     Indication: PRODUCT USED FOR UNKNOWN INDICATION
  6. IBUPROFEN [Concomitant]
     Indication: ARTHRITIS
  7. ST. JOSEPH ASPIRIN [Concomitant]
     Indication: PRODUCT USED FOR UNKNOWN INDICATION
     Dosage: 81 MG DAILY
  8. VITAMIN B6 [Concomitant]
     Indication: PRODUCT USED FOR UNKNOWN INDICATION
  9. VITAMIN B12 [Concomitant]
     Indication: PRODUCT USED FOR UNKNOWN INDICATION
  10. FOLIC ACID [Concomitant]
     Indication: PRODUCT USED FOR UNKNOWN INDICATION
  11. VITAMIN C [Concomitant]
     Indication: PRODUCT USED FOR UNKNOWN INDICATION
  12. VITAMIN D3 [Concomitant]
     Indication: PRODUCT USED FOR UNKNOWN INDICATION
  13. MAGNESIUM [Concomitant]
     Indication: PRODUCT USED FOR UNKNOWN INDICATION
  14. CALCIUM [Concomitant]
     Indication: PRODUCT USED FOR UNKNOWN INDICATION
  15. ZINC [Concomitant]
     Indication: PRODUCT USED FOR UNKNOWN INDICATION

REACTIONS (12)
  - Physical disability [Unknown]
  - Road traffic accident [Unknown]
  - Rib fracture [Unknown]
  - Chest injury [Recovering/Resolving]
  - Neck injury [Recovering/Resolving]
  - Anxiety [Unknown]
  - Depression [Unknown]
  - Pain [Unknown]
  - Arthralgia [Recovering/Resolving]
  - Fibromyalgia [Unknown]
  - Constipation [Unknown]
  - Head injury [Recovering/Resolving]
